FAERS Safety Report 22144691 (Version 1)
Quarter: 2023Q1

REPORT INFORMATION
  Report Type: Spontaneous
  Country: US (occurrence: US)
  Receive Date: 20230328
  Receipt Date: 20230328
  Transmission Date: 20230417
  Serious: No
  Sender: FDA-Public Use
  Company Number: US-ELI_LILLY_AND_COMPANY-US202303007152

PATIENT
  Age: 75 Year
  Sex: Female

DRUGS (3)
  1. MOUNJARO [Suspect]
     Active Substance: TIRZEPATIDE
     Indication: Type 2 diabetes mellitus
     Dosage: UNK UNK, UNKNOWN
     Route: 065
     Dates: start: 202209
  2. MOUNJARO [Suspect]
     Active Substance: TIRZEPATIDE
     Dosage: 7.5 MG, UNKNOWN
     Route: 065
  3. INSULIN NOS [Concomitant]
     Active Substance: INSULIN NOS
     Indication: Product used for unknown indication

REACTIONS (4)
  - Hunger [Unknown]
  - Decreased appetite [Unknown]
  - Blood glucose increased [Unknown]
  - Injection site pain [Unknown]

NARRATIVE: CASE EVENT DATE: 20230305
